FAERS Safety Report 9440173 (Version 1)
Quarter: 2013Q3

REPORT INFORMATION
  Report Type: Spontaneous
  Country: BR (occurrence: BR)
  Receive Date: 20130805
  Receipt Date: 20130805
  Transmission Date: 20140515
  Serious: Yes (Other)
  Sender: FDA-Public Use
  Company Number: PHHY2013BR082662

PATIENT
  Age: 70 Year
  Sex: Male
  Weight: 80 kg

DRUGS (4)
  1. GALVUS [Suspect]
     Dosage: 50 MG, UNK
  2. DIOVAN HCT [Suspect]
     Indication: RENAL DISORDER
     Dosage: 1 DF (80MG VALS/ 12.5MG HYDR), UNK
  3. DIOVAN HCT [Suspect]
     Indication: OFF LABEL USE
  4. INFLUENZA A (H1N1) [Suspect]
     Dosage: UNK UKN, UNK
     Dates: start: 20130417

REACTIONS (2)
  - Pneumonia [Unknown]
  - Influenza [Unknown]
